FAERS Safety Report 6999990-2 (Version None)
Quarter: 2010Q3

REPORT INFORMATION
  Report Type: 
  Country: None (occurrence: None)
  Receive Date: 20100920
  Receipt Date: 20070807
  Transmission Date: 20110219
  Serious: No
  Sender: FDA-Public Use
  Company Number: US-ASTRAZENECA-2006UW08146

PATIENT
  Age: 45 Year
  Sex: Male
  Weight: 125.6 kg

DRUGS (10)
  1. SEROQUEL [Suspect]
     Indication: DEPRESSION
     Route: 048
     Dates: start: 20011002
  2. SEROQUEL [Suspect]
     Indication: SLEEP DISORDER
     Route: 048
     Dates: start: 20011002
  3. HALDOL [Concomitant]
     Dates: start: 20020101, end: 20030101
  4. HALDOL [Concomitant]
     Dates: start: 20011002
  5. ZYPREXA [Concomitant]
     Dates: start: 20020101, end: 20030101
  6. ZYPREXA [Concomitant]
     Dosage: 5-10MG
     Dates: start: 20011002
  7. ZOLOFT [Concomitant]
     Dosage: 50-100MG
     Dates: start: 20000918
  8. PRINZIDE [Concomitant]
     Dosage: 20/12.5MG
     Dates: start: 20010618
  9. VIOXX [Concomitant]
     Dates: start: 20010618
  10. HYDROCODONE [Concomitant]
     Dates: start: 20010618

REACTIONS (8)
  - ARTERIAL OCCLUSIVE DISEASE [None]
  - BLOOD CHOLESTEROL INCREASED [None]
  - BLOOD TRIGLYCERIDES INCREASED [None]
  - CHOLELITHIASIS [None]
  - DIABETES MELLITUS [None]
  - HYPERCHOLESTEROLAEMIA [None]
  - HYPERTENSION [None]
  - TYPE 2 DIABETES MELLITUS [None]
